FAERS Safety Report 12942360 (Version 1)
Quarter: 2016Q4

REPORT INFORMATION
  Report Type: Spontaneous
  Country: US (occurrence: US)
  Receive Date: 20161114
  Receipt Date: 20161114
  Transmission Date: 20170207
  Serious: No
  Sender: FDA-Public Use
  Company Number: US-ASTRAZENECA-2016SF12449

PATIENT
  Sex: Male
  Weight: 131.5 kg

DRUGS (3)
  1. SYMBICORT [Suspect]
     Active Substance: BUDESONIDE\FORMOTEROL FUMARATE DIHYDRATE
     Indication: ASTHMA
     Dosage: 160/4.5 MCG, ONE PUFF TWICE PER DAY
     Route: 055
     Dates: start: 2010
  2. PROAIR INHALER [Concomitant]
     Dosage: AS REQUIRED
     Route: 055
     Dates: start: 2011
  3. XANAX [Concomitant]
     Active Substance: ALPRAZOLAM
     Indication: ANXIETY
     Dosage: 0.5MG AS REQUIRED
     Route: 048
     Dates: start: 2011

REACTIONS (4)
  - Intentional product misuse [Unknown]
  - Nasopharyngitis [Unknown]
  - Off label use [Unknown]
  - Sinusitis [Unknown]
